FAERS Safety Report 4691322-8 (Version None)
Quarter: 2005Q2

REPORT INFORMATION
  Report Type: 
  Country: None (occurrence: None)
  Receive Date: 20050610
  Receipt Date: 20050531
  Transmission Date: 20051028
  Serious: Yes (Other)
  Sender: FDA-Public Use
  Company Number: 2005081838

PATIENT
  Sex: Female
  Weight: 94.3482 kg

DRUGS (5)
  1. CELEBREX [Suspect]
     Indication: RHEUMATOID ARTHRITIS
     Dosage: 20 MG (20 MG, 1 IN 1 D), ORAL
     Route: 048
     Dates: start: 20020101
  2. BEXTRA [Suspect]
     Indication: RHEUMATOID ARTHRITIS
     Dosage: ORAL
     Route: 048
  3. PROZAC [Concomitant]
     Route: 048
  4. SYNTHROID [Concomitant]
     Route: 048
  5. DARVOCET                     (DEXTROPROPOXYPHENE NAPSILATE, PARACETAMO [Concomitant]
     Route: 048

REACTIONS (4)
  - ANXIETY [None]
  - DRUG INEFFECTIVE [None]
  - HYSTERECTOMY [None]
  - PAIN [None]
